FAERS Safety Report 24893099 (Version 1)
Quarter: 2025Q1

REPORT INFORMATION
  Report Type: Other
  Country: HK (occurrence: HK)
  Receive Date: 20250128
  Receipt Date: 20250128
  Transmission Date: 20250409
  Serious: Yes (Other)
  Sender: ALVOGEN
  Company Number: HK-ALVOGEN-2025096201

PATIENT
  Age: 3 Month
  Sex: Female

DRUGS (1)
  1. FLECAINIDE [Suspect]
     Active Substance: FLECAINIDE
     Indication: Arrhythmia

REACTIONS (4)
  - Electrocardiogram abnormal [Unknown]
  - Electrocardiogram QRS complex abnormal [Unknown]
  - Unmasking of previously unidentified disease [Unknown]
  - Bradycardia [Unknown]
